FAERS Safety Report 4775134-2 (Version None)
Quarter: 2005Q3

REPORT INFORMATION
  Report Type: 
  Country: None (occurrence: None)
  Receive Date: 20050920
  Receipt Date: 20050908
  Transmission Date: 20060218
  Serious: Yes (Other)
  Sender: FDA-Public Use
  Company Number: 2005126101

PATIENT
  Age: 44 Year
  Sex: Male

DRUGS (1)
  1. GEODON [Suspect]
     Indication: ILL-DEFINED DISORDER

REACTIONS (11)
  - ARTHRITIS [None]
  - ARTHROPATHY [None]
  - CEREBRAL LOBOTOMY [None]
  - GASTROINTESTINAL DISORDER [None]
  - HYPOAESTHESIA [None]
  - INFLAMMATION [None]
  - MENISCUS LESION [None]
  - PAIN [None]
  - PERIPHERAL EMBOLISM [None]
  - PHLEBITIS [None]
  - SYSTEMIC LUPUS ERYTHEMATOSUS [None]
